FAERS Safety Report 7820410-X (Version None)
Quarter: 2011Q4

REPORT INFORMATION
  Report Type: 
  Country: None (occurrence: None)
  Receive Date: 20111013
  Receipt Date: 20110927
  Transmission Date: 20120403
  Serious: Yes (Other)
  Sender: FDA-Public Use
  Company Number: JPI-P-017367

PATIENT
  Age: 72 Year
  Sex: Female
  Weight: 52.1637 kg

DRUGS (8)
  1. XYREM [Suspect]
     Indication: NARCOLEPSY
     Dosage: 4.5 GM (2.25 GM, 2 IN 1 D), ORAL 6 GM (3 GM, 2 IN 1 D), ORAL (3 GM, TAKES ONLY FIRST DOSE SOMETIMES)
     Route: 048
     Dates: start: 20040201
  2. XYREM [Suspect]
     Indication: NARCOLEPSY
     Dosage: 4.5 GM (2.25 GM, 2 IN 1 D), ORAL 6 GM (3 GM, 2 IN 1 D), ORAL (3 GM, TAKES ONLY FIRST DOSE SOMETIMES)
     Route: 048
     Dates: start: 20110601, end: 20110101
  3. XYREM [Suspect]
     Indication: NARCOLEPSY
     Dosage: 4.5 GM (2.25 GM, 2 IN 1 D), ORAL 6 GM (3 GM, 2 IN 1 D), ORAL (3 GM, TAKES ONLY FIRST DOSE SOMETIMES)
     Route: 048
     Dates: start: 20110101
  4. DICYCLOMINE [Concomitant]
  5. THYROID TAB [Concomitant]
  6. ZOLPIDEM [Concomitant]
  7. PANTOPRAZOLE [Concomitant]
  8. TRAZODONE HYDROCHLORIDE [Concomitant]

REACTIONS (7)
  - INSOMNIA [None]
  - ARTHROPATHY [None]
  - MACULAR DEGENERATION [None]
  - MUSCULOSKELETAL DISORDER [None]
  - TENDON RUPTURE [None]
  - PROCEDURAL PAIN [None]
  - CONDITION AGGRAVATED [None]
